FAERS Safety Report 8029975-9 (Version None)
Quarter: 2012Q1

REPORT INFORMATION
  Report Type: 
  Country: None (occurrence: None)
  Receive Date: 20120109
  Receipt Date: 20111228
  Transmission Date: 20120608
  Serious: Yes (Hospitalization)
  Sender: FDA-Public Use
  Company Number: TW-US-EMD SERONO, INC.-7098233

PATIENT
  Sex: Female
  Weight: 44 kg

DRUGS (2)
  1. REBIF [Suspect]
     Indication: RELAPSING-REMITTING MULTIPLE SCLEROSIS
     Route: 058
     Dates: start: 20110325
  2. REBIF [Suspect]
     Dates: start: 20111220

REACTIONS (2)
  - NASOPHARYNGITIS [None]
  - HYPERSENSITIVITY [None]
